FAERS Safety Report 7532450-9 (Version None)
Quarter: 2011Q2

REPORT INFORMATION
  Report Type: 
  Country: None (occurrence: None)
  Receive Date: 20110607
  Receipt Date: 20110607
  Transmission Date: 20111010
  Serious: Yes (Life-Threatening, Disabling)
  Sender: FDA-Public Use
  Company Number: None

PATIENT
  Age: 72 Year
  Sex: Female
  Weight: 136.0791 kg

DRUGS (1)
  1. ROCEPHIN [Suspect]
     Indication: CYSTITIS
     Dosage: 2 CC'S ONE DOSE IV
     Route: 042
     Dates: start: 20110529, end: 20110529

REACTIONS (4)
  - TREMOR [None]
  - HEART RATE INCREASED [None]
  - VOMITING [None]
  - FLUSHING [None]
